FAERS Safety Report 5916181-4 (Version None)
Quarter: 2008Q4

REPORT INFORMATION
  Report Type: 
  Country: None (occurrence: None)
  Receive Date: 20081013
  Receipt Date: 20081003
  Transmission Date: 20090506
  Serious: Yes (Other)
  Sender: FDA-Public Use
  Company Number: US-BAYER-200813020BCC

PATIENT
  Age: 50 Year
  Sex: Female
  Weight: 65 kg

DRUGS (1)
  1. ASPIRIN [Suspect]
     Indication: FIBROMYALGIA
     Route: 048

REACTIONS (5)
  - ABASIA [None]
  - ADVERSE DRUG REACTION [None]
  - DYSPNOEA [None]
  - FIBROMYALGIA [None]
  - HEADACHE [None]
